FAERS Safety Report 23641443 (Version 1)
Quarter: 2024Q1

REPORT INFORMATION
  Report Type: Spontaneous
  Country: US (occurrence: US)
  Receive Date: 20240318
  Receipt Date: 20240318
  Transmission Date: 20240409
  Serious: Yes (Disabling, Other)
  Sender: FDA-Public Use
  Company Number: US-CHEPLA-2024003292

PATIENT
  Sex: Male

DRUGS (2)
  1. HYDROXYUREA [Suspect]
     Active Substance: HYDROXYUREA
     Indication: Polycythaemia vera
     Dates: start: 202311
  2. JAKAFI [Suspect]
     Active Substance: RUXOLITINIB
     Indication: Polycythaemia vera
     Dosage: BID/THE PATIENT HAD BEEN ON JAKAFI FOR ABOUT 7 YEARS?DAILY DOSE: 20 MILLIGRAM
     Dates: end: 202311

REACTIONS (2)
  - Spinal disorder [Unknown]
  - Neuropathy peripheral [Unknown]
